FAERS Safety Report 7753596-6 (Version None)
Quarter: 2011Q3

REPORT INFORMATION
  Report Type: 
  Country: None (occurrence: None)
  Receive Date: 20110915
  Receipt Date: 20110913
  Transmission Date: 20111222
  Serious: Yes (Hospitalization, Disabling)
  Sender: FDA-Public Use
  Company Number: US-GLAXOSMITHKLINE-A0932546A

PATIENT
  Age: 65 Year
  Sex: Female

DRUGS (1)
  1. AVANDIA [Suspect]
     Indication: DIABETES MELLITUS
     Dosage: 4MG PER DAY
     Route: 048
     Dates: start: 20030901, end: 20090101

REACTIONS (10)
  - CARDIAC FAILURE CONGESTIVE [None]
  - ANXIETY [None]
  - HEART RATE IRREGULAR [None]
  - CONDITION AGGRAVATED [None]
  - PAIN [None]
  - ECONOMIC PROBLEM [None]
  - HYPERTENSION [None]
  - ANHEDONIA [None]
  - MYOCARDIAL INFARCTION [None]
  - LIVER DISORDER [None]
